FAERS Safety Report 11202352 (Version 2)
Quarter: 2015Q3

REPORT INFORMATION
  Report Type: Spontaneous
  Country: IT (occurrence: IT)
  Receive Date: 20150619
  Receipt Date: 20150710
  Transmission Date: 20151125
  Serious: Yes (Death)
  Sender: FDA-Public Use
  Company Number: IT-PFIZER INC-2015201885

PATIENT
  Sex: Female

DRUGS (2)
  1. CRIZOTINIB [Suspect]
     Active Substance: CRIZOTINIB
     Indication: NON-SMALL CELL LUNG CANCER
     Dosage: 250 MG, 2X/DAY WITHOUT INTERRUPTION
     Dates: start: 20150331
  2. SOLDESAM [Concomitant]
     Active Substance: DEXAMETHASONE
     Dosage: 2 MG, 2X/DAY

REACTIONS (2)
  - Hepatic failure [Fatal]
  - Jaundice [Fatal]
